FAERS Safety Report 5011184-9 (Version None)
Quarter: 2006Q2

REPORT INFORMATION
  Report Type: 
  Country: None (occurrence: None)
  Receive Date: 20060523
  Receipt Date: 20060517
  Transmission Date: 20061013
  Serious: Yes (Death)
  Sender: FDA-Public Use
  Company Number: 200610641BYL

PATIENT
  Sex: 0

DRUGS (1)
  1. AVELOX [Suspect]
     Indication: BRONCHITIS ACUTE
     Dosage: 400 MG, QD, ORAL
     Route: 048

REACTIONS (3)
  - MALIGNANT NEOPLASM PROGRESSION [None]
  - PROCEDURAL COMPLICATION [None]
  - TRACHEAL HAEMORRHAGE [None]
